FAERS Safety Report 14840357 (Version 1)
Quarter: 2018Q2

REPORT INFORMATION
  Report Type: Other
  Country: ES (occurrence: ES)
  Receive Date: 20180503
  Receipt Date: 20180503
  Transmission Date: 20180711
  Serious: Yes (Life-Threatening, Hospitalization, Other)
  Sender: FDA-Public Use
  Company Number: ES-APOTEX-2018AP011623

PATIENT
  Age: 64 Year
  Sex: Male

DRUGS (6)
  1. PALIPERIDONE ER [Interacting]
     Active Substance: PALIPERIDONE
     Indication: SCHIZOPHRENIA
     Dosage: 1050 MG, UNK
     Route: 030
     Dates: start: 20170227, end: 20180212
  2. QUETIAPINA APOTEX COMPRIMIDOS DE LIBERACION PROLONGADA EFG [Interacting]
     Active Substance: QUETIAPINE FUMARATE
     Dosage: 700 MG, QD
     Route: 048
     Dates: start: 20160615, end: 20180311
  3. PAROXETINE. [Suspect]
     Active Substance: PAROXETINE
     Dosage: 20 MG, QD
     Route: 048
     Dates: start: 20160615, end: 20180311
  4. AKINETON [Concomitant]
     Active Substance: BIPERIDEN HYDROCHLORIDE
     Indication: SCHIZOPHRENIA
     Dosage: 4 MG, QD
     Route: 048
     Dates: start: 20160615, end: 20180311
  5. DIAZEPAM. [Interacting]
     Active Substance: DIAZEPAM
     Dosage: 10 MG, QD
     Route: 048
     Dates: start: 20180309, end: 20180311
  6. RISPERIDONE. [Interacting]
     Active Substance: RISPERIDONE
     Indication: SCHIZOPHRENIA
     Dosage: UNK
     Route: 048
     Dates: start: 20160615, end: 20180311

REACTIONS (1)
  - Coma [Recovered/Resolved]

NARRATIVE: CASE EVENT DATE: 20180311
